FAERS Safety Report 9222891 (Version 1)
Quarter: 2013Q1

REPORT INFORMATION
  Report Type: Spontaneous
  Country: US (occurrence: None)
  Receive Date: 20120914
  Receipt Date: 20120914
  Transmission Date: 20140127
  Serious: Yes (Other)
  Sender: FDA-Public Use
  Company Number: JPI-P-019688

PATIENT
  Age: 35 Year
  Sex: Female
  Weight: 136.08 kg

DRUGS (7)
  1. XYREM (500 MILLIGRAM/MILLILITERS, SOLUTION) (SODIUM OXYBATE) [Suspect]
     Indication: NARCOLEPSY
     Route: 048
     Dates: start: 20120131, end: 2012
  2. CYMBALTA (DULOXETINE) [Concomitant]
  3. YAZ (ETHINYL ESTRADIOL) [Concomitant]
  4. IBUPROFEN [Concomitant]
  5. PEPTO BISMOL [Concomitant]
  6. IMMODIUM (LOPERAMIDE) [Concomitant]
  7. BIRTH CONTROL [Concomitant]

REACTIONS (10)
  - Upper airway resistance syndrome [None]
  - Somnolence [None]
  - Drug dose omission [None]
  - Feeling abnormal [None]
  - Vertigo [None]
  - Nasopharyngitis [None]
  - Nasal congestion [None]
  - Rhinorrhoea [None]
  - Fatigue [None]
  - Feeling drunk [None]
